FAERS Safety Report 7058337-6 (Version None)
Quarter: 2010Q4

REPORT INFORMATION
  Report Type: 
  Country: None (occurrence: None)
  Receive Date: 20101022
  Receipt Date: 20101011
  Transmission Date: 20110411
  Serious: No
  Sender: FDA-Public Use
  Company Number: US-PFIZER INC-2010132122

PATIENT
  Sex: Female
  Weight: 68.481 kg

DRUGS (10)
  1. LIPITOR [Suspect]
     Indication: BLOOD CHOLESTEROL INCREASED
     Dosage: 40 MG, 1X/DAY
     Route: 048
  2. ATENOLOL [Concomitant]
     Dosage: UNK
  3. LORATADINE [Concomitant]
     Indication: HYPERSENSITIVITY
     Dosage: UNK
  4. ALLEGRA [Concomitant]
     Indication: HYPERSENSITIVITY
     Dosage: UNK
  5. PROTONIX [Concomitant]
     Indication: GASTROOESOPHAGEAL REFLUX DISEASE
     Dosage: UNK
  6. MONTELUKAST [Concomitant]
     Dosage: UNK
  7. LEVOTHYROXINE [Concomitant]
     Indication: HYPOTHYROIDISM
     Dosage: UNK
  8. VALSARTAN [Concomitant]
     Indication: HYPERTENSION
     Dosage: UNK
  9. MAGNESIUM [Concomitant]
     Dosage: UNK
  10. ACETYLSALICYLIC ACID [Concomitant]
     Dosage: UNK

REACTIONS (3)
  - BURNING SENSATION [None]
  - DYSGEUSIA [None]
  - TONGUE DISCOLOURATION [None]
